FAERS Safety Report 13625125 (Version 1)
Quarter: 2017Q2

REPORT INFORMATION
  Report Type: Spontaneous
  Country: US (occurrence: US)
  Receive Date: 20170607
  Receipt Date: 20170607
  Transmission Date: 20170830
  Serious: Yes (Other)
  Sender: FDA-Public Use
  Company Number: US-JNJFOC-20170520121

PATIENT
  Sex: Male

DRUGS (1)
  1. RISPERDAL CONSTA [Suspect]
     Active Substance: RISPERIDONE
     Indication: SCHIZOAFFECTIVE DISORDER
     Route: 030

REACTIONS (7)
  - Hypothyroidism [Unknown]
  - Weight decreased [Unknown]
  - General physical condition abnormal [Unknown]
  - Restlessness [Not Recovered/Not Resolved]
  - Psychosexual disorder [Unknown]
  - Schizophrenia [Not Recovered/Not Resolved]
  - Hyperprolactinaemia [Unknown]
